FAERS Safety Report 18854304 (Version 1)
Quarter: 2021Q1

REPORT INFORMATION
  Report Type: Spontaneous
  Country: GB (occurrence: GB)
  Receive Date: 20210205
  Receipt Date: 20210205
  Transmission Date: 20210420
  Serious: Yes (Disabling)
  Sender: FDA-Public Use
  Company Number: GB-PFIZER INC-2021096794

PATIENT
  Age: 23 Year
  Sex: Female
  Weight: 50 kg

DRUGS (3)
  1. PROGESTERONE. [Concomitant]
     Active Substance: PROGESTERONE
     Indication: ILL-DEFINED DISORDER
  2. SERTRALINE HCL [Suspect]
     Active Substance: SERTRALINE HYDROCHLORIDE
     Indication: DEPRESSION
     Dosage: 50MG
     Route: 048
     Dates: start: 20171217, end: 20180106
  3. GABAPENTIN. [Suspect]
     Active Substance: GABAPENTIN
     Indication: PAIN
     Dosage: 300MG
     Route: 048
     Dates: start: 20171204, end: 20180105

REACTIONS (10)
  - Paranoia [Recovered/Resolved]
  - Depression suicidal [Recovered/Resolved with Sequelae]
  - Bedridden [Unknown]
  - Delusional perception [Unknown]
  - Crying [Unknown]
  - Anxiety [Unknown]
  - Decreased appetite [Unknown]
  - Off label use [Unknown]
  - Dissociation [Unknown]
  - Emotional distress [Unknown]

NARRATIVE: CASE EVENT DATE: 20171230
